FAERS Safety Report 17766578 (Version 2)
Quarter: 2020Q2

REPORT INFORMATION
  Report Type: Spontaneous
  Country: US (occurrence: US)
  Receive Date: 20200511
  Receipt Date: 20200515
  Transmission Date: 20200714
  Serious: No
  Sender: FDA-Public Use
  Company Number: US-GW PHARMA-202005USGW01664

PATIENT

DRUGS (1)
  1. EPIDIOLEX [Suspect]
     Active Substance: CANNABIDIOL
     Indication: EPILEPSY
     Dosage: 670 MILLIGRAM, BID
     Route: 048
     Dates: start: 20190706

REACTIONS (3)
  - Insurance issue [Recovered/Resolved]
  - Seizure [Recovering/Resolving]
  - Product dose omission [Recovered/Resolved]
